FAERS Safety Report 4558172-4 (Version None)
Quarter: 2005Q1

REPORT INFORMATION
  Report Type: 
  Country: None (occurrence: None)
  Receive Date: 20050103
  Receipt Date: 20040924
  Transmission Date: 20050727
  Serious: Yes (Other)
  Sender: FDA-Public Use
  Company Number: 2004UW19993

PATIENT
  Age: 77 Year
  Sex: Female
  Weight: 104.3273 kg

DRUGS (5)
  1. CRESTOR [Suspect]
     Indication: BLOOD CHOLESTEROL INCREASED
     Dosage: 10 MG PO
     Route: 048
     Dates: start: 20040913
  2. ACCUPRIL [Concomitant]
  3. TOPROL-XL [Concomitant]
  4. NEXIUM [Concomitant]
  5. COUMADIN [Concomitant]

REACTIONS (2)
  - BONE PAIN [None]
  - DRY THROAT [None]
